FAERS Safety Report 9013332 (Version 2)
Quarter: 2013Q1

REPORT INFORMATION
  Report Type: Spontaneous
  Country: IT (occurrence: IT)
  Receive Date: 20130115
  Receipt Date: 20130201
  Transmission Date: 20140127
  Serious: Yes (Hospitalization)
  Sender: FDA-Public Use
  Company Number: IT-009507513-1301ITA005465

PATIENT
  Age: 89 Year
  Sex: Male

DRUGS (3)
  1. REMERON [Suspect]
     Indication: INSOMNIA
     Dosage: 15 MG TOTAL
     Route: 048
     Dates: start: 20121213, end: 20121213
  2. TAVOR [Suspect]
     Indication: INSOMNIA
     Dosage: 2 MG DAILY
     Route: 048
     Dates: start: 20120101
  3. TAVOR [Suspect]
     Indication: INSOMNIA
     Dosage: 2.5 MG DAILY
     Route: 048
     Dates: start: 20120101

REACTIONS (1)
  - Sopor [Recovered/Resolved]
